FAERS Safety Report 12540173 (Version 1)
Quarter: 2016Q3

REPORT INFORMATION
  Report Type: Spontaneous
  Country: US (occurrence: US)
  Receive Date: 20160708
  Receipt Date: 20160708
  Transmission Date: 20161109
  Serious: No
  Sender: FDA-Public Use
  Company Number: US-BEH-2016070374

PATIENT
  Age: 88 Year
  Sex: Female
  Weight: 54.88 kg

DRUGS (40)
  1. HIZENTRA [Suspect]
     Active Substance: HUMAN IMMUNOGLOBULIN G
     Dosage: UNK
     Route: 058
  2. LORATADINE. [Concomitant]
     Active Substance: LORATADINE
  3. SIMVASTATIN. [Concomitant]
     Active Substance: SIMVASTATIN
  4. DIFLUCAN [Concomitant]
     Active Substance: FLUCONAZOLE
  5. RANITIDINE. [Concomitant]
     Active Substance: RANITIDINE
  6. ADVAIR HFA [Concomitant]
     Active Substance: FLUTICASONE PROPIONATE\SALMETEROL XINAFOATE
  7. OMEPRAZOLE. [Concomitant]
     Active Substance: OMEPRAZOLE
  8. PYRIDIUM [Concomitant]
     Active Substance: PHENAZOPYRIDINE
  9. MAGNESIUM [Concomitant]
     Active Substance: MAGNESIUM
  10. AVELOX [Concomitant]
     Active Substance: MOXIFLOXACIN HYDROCHLORIDE
  11. ACETAMINOPHEN. [Concomitant]
     Active Substance: ACETAMINOPHEN
  12. DEXTROMETHORPHAN W/GUAIFENESIN/PHENYLEPHRINE [Concomitant]
  13. FLONASE [Concomitant]
     Active Substance: FLUTICASONE PROPIONATE
  14. PROAIR HFA [Concomitant]
     Active Substance: ALBUTEROL SULFATE
  15. ZYRTEC-D [Concomitant]
     Active Substance: CETIRIZINE HYDROCHLORIDE\PSEUDOEPHEDRINE HYDROCHLORIDE
  16. COLACE [Concomitant]
     Active Substance: DOCUSATE SODIUM
  17. DUONEB [Concomitant]
     Active Substance: ALBUTEROL SULFATE\IPRATROPIUM BROMIDE
  18. HIZENTRA [Suspect]
     Active Substance: HUMAN IMMUNOGLOBULIN G
     Dosage: 13 G, QW
     Route: 058
  19. DIPHENHYDRAMINE. [Concomitant]
     Active Substance: DIPHENHYDRAMINE
  20. CORTISONE [Concomitant]
     Active Substance: CORTISONE\HYDROCORTISONE
  21. MULTIVITAMINS [Concomitant]
     Active Substance: VITAMINS
  22. AZITHROMYCIN ANHYDROUS. [Concomitant]
     Active Substance: AZITHROMYCIN ANHYDROUS
  23. ALBUTEROL SULFATE. [Concomitant]
     Active Substance: ALBUTEROL SULFATE
  24. EYLEA [Concomitant]
     Active Substance: AFLIBERCEPT
  25. IMODIUM [Concomitant]
     Active Substance: LOPERAMIDE HYDROCHLORIDE
  26. EPIPEN [Concomitant]
     Active Substance: EPINEPHRINE
  27. BENZONATATE. [Concomitant]
     Active Substance: BENZONATATE
  28. KEFLEX [Concomitant]
     Active Substance: CEPHALEXIN
  29. MONTELUKAST [Concomitant]
     Active Substance: MONTELUKAST SODIUM
  30. VITAMIN D                          /00107901/ [Concomitant]
     Active Substance: ERGOCALCIFEROL
  31. LEVOXYL [Concomitant]
     Active Substance: LEVOTHYROXINE SODIUM
  32. NASONEX [Concomitant]
     Active Substance: MOMETASONE FUROATE
  33. HYDROCORTISONE. [Concomitant]
     Active Substance: HYDROCORTISONE
  34. HIZENTRA [Suspect]
     Active Substance: HUMAN IMMUNOGLOBULIN G
     Indication: IMMUNODEFICIENCY COMMON VARIABLE
     Dosage: UNK
     Route: 058
  35. BRINZOLAMIDE [Concomitant]
     Active Substance: BRINZOLAMIDE
  36. ESTRACE [Concomitant]
     Active Substance: ESTRADIOL
  37. ATIVAN [Concomitant]
     Active Substance: LORAZEPAM
  38. CIPRO [Concomitant]
     Active Substance: CIPROFLOXACIN HYDROCHLORIDE
  39. AFRIN [Concomitant]
     Active Substance: OXYMETAZOLINE
  40. PHENAZOPYRIDINE. [Concomitant]
     Active Substance: PHENAZOPYRIDINE

REACTIONS (2)
  - Infusion site swelling [Unknown]
  - Infusion site discomfort [Unknown]

NARRATIVE: CASE EVENT DATE: 201603
